FAERS Safety Report 5370437-5 (Version None)
Quarter: 2007Q2

REPORT INFORMATION
  Report Type: 
  Country: None (occurrence: None)
  Receive Date: 20070626
  Receipt Date: 20070426
  Transmission Date: 20071010
  Serious: No
  Sender: FDA-Public Use
  Company Number: US-AMGEN-US221588

PATIENT
  Sex: Female

DRUGS (3)
  1. ARANESP [Suspect]
     Indication: RENAL FAILURE CHRONIC
     Route: 065
     Dates: start: 20050101
  2. HECTORAL [Concomitant]
     Route: 065
  3. ANTIHYPERTENSIVE MEDICATION NOS [Concomitant]
     Route: 065

REACTIONS (3)
  - BLOOD POTASSIUM ABNORMAL [None]
  - HAEMATOCRIT DECREASED [None]
  - MEDICATION ERROR [None]
